FAERS Safety Report 5772946-3 (Version None)
Quarter: 2008Q2

REPORT INFORMATION
  Report Type: 
  Country: None (occurrence: None)
  Receive Date: 20080613
  Receipt Date: 20080520
  Transmission Date: 20081010
  Serious: Yes (Hospitalization)
  Sender: FDA-Public Use
  Company Number: US-PFIZER INC-2008047401

PATIENT
  Sex: Female
  Weight: 80.7 kg

DRUGS (2)
  1. ATORVASTATIN [Suspect]
     Indication: BLOOD CHOLESTEROL
     Route: 048
  2. NIASPAN [Suspect]
     Indication: BLOOD CHOLESTEROL
     Route: 048
     Dates: start: 20000101, end: 20020101

REACTIONS (4)
  - ABASIA [None]
  - FLUSHING [None]
  - PAIN IN EXTREMITY [None]
  - RHABDOMYOLYSIS [None]
